FAERS Safety Report 19392750 (Version 1)
Quarter: 2021Q2

REPORT INFORMATION
  Report Type: Spontaneous
  Country: CH (occurrence: CH)
  Receive Date: 20210609
  Receipt Date: 20210609
  Transmission Date: 20210717
  Serious: Yes (Other)
  Sender: FDA-Public Use
  Company Number: NVSC2021CH123991

PATIENT
  Sex: Female
  Weight: 2.34 kg

DRUGS (7)
  1. AZITHROMYCIN ANHYDROUS. [Suspect]
     Active Substance: AZITHROMYCIN ANHYDROUS
     Indication: FOETAL EXPOSURE DURING PREGNANCY
     Dosage: 500 MG, QD (MATERNAL DOSE)
     Route: 064
  2. SPIRAMYCIN [Suspect]
     Active Substance: SPIRAMYCIN
     Indication: FOETAL EXPOSURE DURING PREGNANCY
     Dosage: 9 MIO LU, QD (MATERNAL DOSE)
     Route: 064
  3. SULFADIAZINE. [Suspect]
     Active Substance: SULFADIAZINE
     Indication: FOETAL EXPOSURE DURING PREGNANCY
     Dosage: 4 G, QD (MATERNAL DOSE)
     Route: 064
  4. PYRIMETHAMINE [Suspect]
     Active Substance: PYRIMETHAMINE
     Indication: FOETAL EXPOSURE DURING PREGNANCY
     Dosage: UNK
     Route: 064
  5. CEFTRIAXONE. [Suspect]
     Active Substance: CEFTRIAXONE
     Indication: FOETAL EXPOSURE DURING PREGNANCY
     Dosage: UNK
     Route: 064
  6. AMOXICILLIN AND CLAVULANATE POTASSIUM [Suspect]
     Active Substance: AMOXICILLIN\CLAVULANATE POTASSIUM
     Indication: FOETAL EXPOSURE DURING PREGNANCY
     Dosage: 2.2 G, TID (MATERNAL DOSE)
     Route: 064
  7. CALCIUM FOLINATE [Suspect]
     Active Substance: LEUCOVORIN CALCIUM
     Indication: FOETAL EXPOSURE DURING PREGNANCY
     Dosage: UNK
     Route: 064

REACTIONS (2)
  - Pulmonary hypertension [Unknown]
  - Foetal exposure during pregnancy [Unknown]
